FAERS Safety Report 12921107 (Version 1)
Quarter: 2016Q4

REPORT INFORMATION
  Report Type: Spontaneous
  Country: US (occurrence: US)
  Receive Date: 20161107
  Receipt Date: 20161107
  Transmission Date: 20170207
  Serious: Yes (Other)
  Sender: FDA-Public Use
  Company Number: US-AKORN PHARMACEUTICALS-2016AKN00769

PATIENT
  Age: 5 Year
  Sex: Male

DRUGS (3)
  1. FENRETIDINE [Suspect]
     Active Substance: FENRETINIDE
     Indication: METASTATIC NEOPLASM
  2. FENRETIDINE [Suspect]
     Active Substance: FENRETINIDE
     Indication: NEUROBLASTOMA
     Dosage: 800 MG (2,475 MG/M^2/DAY), 3X/DAY FOR 7 DAYS
     Route: 048
  3. ISOTRETINOIN [Suspect]
     Active Substance: ISOTRETINOIN
     Indication: NEUROBLASTOMA
     Dosage: CUMULATIVE DOSE: 13,440 MG/M^2, AFTER SIX COURSES
     Route: 065

REACTIONS (2)
  - Epiphyses premature fusion [Recovered/Resolved]
  - Limb asymmetry [Recovered/Resolved]
